FAERS Safety Report 9885109 (Version 1)
Quarter: 2013Q3

REPORT INFORMATION
  Report Type: Spontaneous
  Country: FR (occurrence: None)
  Receive Date: 20130813
  Receipt Date: 20130813
  Transmission Date: 20140515
  Serious: Yes (Other)
  Sender: FDA-Public Use
  Company Number: 2012AT000403

PATIENT
  Age: 51 Year
  Sex: Male

DRUGS (1)
  1. EDEX [Suspect]
     Indication: ERECTILE DYSFUNCTION
     Route: 011
     Dates: start: 2012, end: 2012

REACTIONS (2)
  - Priapism [None]
  - Incorrect dose administered [None]
